FAERS Safety Report 6112884-X (Version None)
Quarter: 2009Q1

REPORT INFORMATION
  Report Type: 
  Country: None (occurrence: None)
  Receive Date: 20090310
  Receipt Date: 20090226
  Transmission Date: 20090719
  Serious: Yes (Hospitalization)
  Sender: FDA-Public Use
  Company Number: WAES 0903ZAF00005

PATIENT
  Age: 46 Year
  Sex: Female

DRUGS (8)
  1. JANUVIA [Suspect]
     Indication: TYPE 2 DIABETES MELLITUS
     Dosage: 100 MG DAILY, PO
     Route: 048
     Dates: start: 20080608, end: 20081005
  2. JANUVIA [Suspect]
     Indication: TYPE 2 DIABETES MELLITUS
     Dosage: 100 MG DAILY, PO
     Route: 048
     Dates: start: 20081007, end: 20081127
  3. TAB METFORMIN HCL [Suspect]
     Indication: TYPE 2 DIABETES MELLITUS
     Dosage: 1500 MG, DAILY, PO
     Route: 048
     Dates: start: 20070801, end: 20081127
  4. TAB METFORMIN HCL [Suspect]
     Indication: TYPE 2 DIABETES MELLITUS
     Dosage: 1500 MG, DAILY, PO
     Route: 048
     Dates: start: 20081127
  5. PLACEBO (UNSPECIFIED) [Suspect]
     Indication: TYPE 2 DIABETES MELLITUS
     Dosage: PO
     Route: 048
     Dates: start: 20080709, end: 20081005
  6. PLACEBO (UNSPECIFIED) [Suspect]
     Indication: TYPE 2 DIABETES MELLITUS
     Dosage: PO
     Route: 048
     Dates: start: 20081007, end: 20081127
  7. TAB SAXAGLIPTIN [Suspect]
     Indication: TYPE 2 DIABETES MELLITUS
     Dosage: 5 MG, DAILY; PO
     Route: 048
     Dates: start: 20080709, end: 20081005
  8. TAB SAXAGLIPTIN [Suspect]
     Indication: TYPE 2 DIABETES MELLITUS
     Dosage: 5 MG, DAILY; PO
     Route: 048
     Dates: start: 20081007, end: 20081127

REACTIONS (4)
  - ANAEMIA [None]
  - DIZZINESS [None]
  - HYPOGLYCAEMIA [None]
  - LOSS OF CONSCIOUSNESS [None]
